FAERS Safety Report 13587476 (Version 2)
Quarter: 2017Q2

REPORT INFORMATION
  Report Type: Spontaneous
  Country: JP (occurrence: JP)
  Receive Date: 20170526
  Receipt Date: 20170630
  Transmission Date: 20170830
  Serious: Yes (Other)
  Sender: FDA-Public Use
  Company Number: JP-BAUSCH-BL-2017-017186

PATIENT
  Age: 74 Year
  Sex: Male

DRUGS (3)
  1. VISUDYNE [Suspect]
     Active Substance: VERTEPORFIN
     Indication: AGE-RELATED MACULAR DEGENERATION
     Dosage: IN THE RIGHT EYE
     Route: 042
     Dates: start: 2009
  2. TRIAMCINOLONE [Concomitant]
     Active Substance: TRIAMCINOLONE
     Indication: PRODUCT USED FOR UNKNOWN INDICATION
  3. LUCENTIS [Suspect]
     Active Substance: RANIBIZUMAB
     Indication: AGE-RELATED MACULAR DEGENERATION
     Route: 050
     Dates: start: 2009

REACTIONS (4)
  - Retinal haemorrhage [Recovering/Resolving]
  - Polypoidal choroidal vasculopathy [Recovering/Resolving]
  - Age-related macular degeneration [Unknown]
  - Disease progression [Unknown]

NARRATIVE: CASE EVENT DATE: 2009
